FAERS Safety Report 7752348 (Version 2)
Quarter: 2020Q3

REPORT INFORMATION
  Report Type: Report from Study
  Country: US (occurrence: US)
  Receive Date: 20110107
  Receipt Date: 20110221
  Transmission Date: 20201104
  Serious: Yes (Hospitalization)
  Sender: FDA-Public Use
  Company Number: US-ROCHE-751561

PATIENT
  Age: 49 Year
  Sex: Female
  Weight: 64.2 kg

DRUGS (1)
  1. IBANDRONIC ACID. [Suspect]
     Active Substance: IBANDRONIC ACID
     Dosage: MISSED 7 DOSES FROM 27?OCT?10 TO 22?DEC?2010
     Route: 048
     Dates: start: 20080131, end: 20101222

REACTIONS (1)
  - Appendicitis [Recovered/Resolved]

NARRATIVE: CASE EVENT DATE: 20101203
